FAERS Safety Report 8885862 (Version 2)
Quarter: 2012Q4

REPORT INFORMATION
  Report Type: Report from Study
  Country: FR (occurrence: FR)
  Receive Date: 20121102
  Receipt Date: 20121112
  Transmission Date: 20130627
  Serious: Yes (Other)
  Sender: FDA-Public Use
  Company Number: FR-MILLENNIUM PHARMACEUTICALS, INC.-2012-07370

PATIENT

DRUGS (12)
  1. VELCADE [Suspect]
     Indication: MULTIPLE MYELOMA
     Dosage: 1.3 mg, UNK
     Route: 042
     Dates: start: 20120406, end: 20120413
  2. DEXAMETHASONE [Suspect]
     Indication: MULTIPLE MYELOMA
     Dosage: 20 mg, UNK
     Route: 048
     Dates: start: 20120406, end: 20120414
  3. BACTRIM [Concomitant]
  4. ZELITREX                           /01269701/ [Concomitant]
  5. ARANESP [Concomitant]
  6. MOPRAL                             /00661201/ [Concomitant]
  7. OROCAL                             /00108001/ [Concomitant]
  8. NITRIDERM [Concomitant]
  9. KARDEGIC                           /00002703/ [Concomitant]
  10. NATISPRAY [Concomitant]
  11. FUROSEMIDE [Concomitant]
  12. UVEDOSE [Concomitant]

REACTIONS (1)
  - Pulmonary fibrosis [Not Recovered/Not Resolved]
